FAERS Safety Report 13101377 (Version 1)
Quarter: 2017Q1

REPORT INFORMATION
  Report Type: Spontaneous
  Country: BR (occurrence: BR)
  Receive Date: 20170110
  Receipt Date: 20170110
  Transmission Date: 20170428
  Serious: Yes (Other)
  Sender: FDA-Public Use
  Company Number: BR-GLAXOSMITHKLINE-BR2017GSK001847

PATIENT
  Age: 4 Year
  Sex: Male
  Weight: 17 kg

DRUGS (2)
  1. BACTROBAN [Suspect]
     Active Substance: MUPIROCIN\MUPIROCIN CALCIUM
     Indication: BALANOPOSTHITIS
     Dosage: 2 DF, QD (APPLICATION(S))
     Route: 061
     Dates: start: 20161223, end: 20161223
  2. KEFLEX [Suspect]
     Active Substance: CEPHALEXIN
     Indication: PRODUCT USED FOR UNKNOWN INDICATION
     Dosage: 5 ML, BID
     Route: 048
     Dates: start: 20161223, end: 20161223

REACTIONS (5)
  - Penile swelling [Recovered/Resolved]
  - Penile erythema [Recovered/Resolved]
  - Product use issue [Recovered/Resolved]
  - Penile haemorrhage [Recovered/Resolved]
  - Penile pain [Recovered/Resolved]

NARRATIVE: CASE EVENT DATE: 20161223
